FAERS Safety Report 6021416-6 (Version None)
Quarter: 2008Q4

REPORT INFORMATION
  Report Type: 
  Country: None (occurrence: None)
  Receive Date: 20081229
  Receipt Date: 20081223
  Transmission Date: 20090506
  Serious: Yes (Life-Threatening)
  Sender: FDA-Public Use
  Company Number: B0551851A

PATIENT
  Age: 52 Year
  Sex: Male

DRUGS (2)
  1. ZOFRAN [Suspect]
     Indication: VOMITING
     Dosage: 16MG PER DAY
     Route: 042
     Dates: start: 20081218, end: 20081218
  2. PERFALGAN [Concomitant]

REACTIONS (7)
  - DIAPHRAGMATIC DISORDER [None]
  - DYSPNOEA [None]
  - ELECTROCARDIOGRAM CHANGE [None]
  - EXTRAPYRAMIDAL DISORDER [None]
  - TACHYCARDIA [None]
  - TACHYPNOEA [None]
  - TREMOR [None]
